FAERS Safety Report 14220159 (Version 1)
Quarter: 2017Q4

REPORT INFORMATION
  Report Type: Spontaneous
  Country: US (occurrence: US)
  Receive Date: 20171123
  Receipt Date: 20171123
  Transmission Date: 20180321
  Serious: No
  Sender: FDA-Public Use
  Company Number: US-JNJFOC-20171006686

PATIENT
  Sex: Male
  Weight: 68.04 kg

DRUGS (1)
  1. RISPERDAL [Suspect]
     Active Substance: RISPERIDONE
     Indication: INSOMNIA
     Route: 048

REACTIONS (13)
  - Adverse drug reaction [Unknown]
  - Visual impairment [Unknown]
  - Feeling abnormal [Unknown]
  - Aggression [Unknown]
  - Mood altered [Unknown]
  - Impaired quality of life [Unknown]
  - Headache [Unknown]
  - Off label use [Unknown]
  - Agitation [Unknown]
  - Pain [Unknown]
  - Product use in unapproved indication [Unknown]
  - Fear [Unknown]
  - Disturbance in attention [Unknown]
